FAERS Safety Report 6999083-4 (Version None)
Quarter: 2010Q3

REPORT INFORMATION
  Report Type: 
  Country: None (occurrence: None)
  Receive Date: 20100920
  Receipt Date: 20100913
  Transmission Date: 20110219
  Serious: Yes (Hospitalization)
  Sender: FDA-Public Use
  Company Number: JP-BAYER-201014307BYL

PATIENT
  Age: 64 Year
  Sex: Male
  Weight: 58 kg

DRUGS (4)
  1. NEXAVAR [Suspect]
     Indication: HEPATIC NEOPLASM MALIGNANT
     Dosage: TOTAL DAILY DOSE: 800 MG  UNIT DOSE: 200 MG
     Route: 048
     Dates: start: 20100710, end: 20100824
  2. LOXONIN [Suspect]
     Indication: ANALGESIC THERAPY
     Route: 048
     Dates: start: 20100817, end: 20100827
  3. BARACLUDE [Concomitant]
     Indication: HEPATITIS B
     Route: 048
  4. HIRUDOID [Concomitant]
     Route: 061
     Dates: start: 20100727, end: 20100827

REACTIONS (1)
  - LIVER FUNCTION TEST ABNORMAL [None]
